FAERS Safety Report 4686476-3 (Version None)
Quarter: 2005Q2

REPORT INFORMATION
  Report Type: 
  Country: None (occurrence: None)
  Receive Date: 20050606
  Receipt Date: 20050524
  Transmission Date: 20051028
  Serious: Yes (Other)
  Sender: FDA-Public Use
  Company Number: 2005079514

PATIENT
  Age: 57 Year
  Sex: Male
  Weight: 79.3795 kg

DRUGS (6)
  1. BEXTRA [Suspect]
     Indication: BACK PAIN
     Dosage: 20 MG(10 MG, 2 IN 1 D), ORAL
     Route: 048
     Dates: start: 20050511
  2. BENADRYL [Suspect]
     Indication: ILL-DEFINED DISORDER
     Dosage: INTRAVENOUS
     Route: 042
     Dates: start: 20050511
  3. LISINOPIRL (LISINOPRIL) [Suspect]
     Indication: HYPERTENSION
     Dosage: 20 MG (20 MG, 1 IN 1 D), ORAL
     Route: 048
  4. CORTISONE ACETATE [Suspect]
     Indication: ILL-DEFINED DISORDER
     Dosage: INTRAVNEOUS
     Route: 042
     Dates: start: 20050514
  5. WELLBUTRIN [Suspect]
     Indication: DEPRESSION
     Dosage: 300 MG (150 MG, 2 IN 1 D), ORAL
     Route: 048
     Dates: start: 20050513
  6. TOPROL (METOPROLOL) [Suspect]
     Indication: ILL-DEFINED DISORDER
     Dosage: ORAL
     Route: 048
     Dates: start: 20050513

REACTIONS (9)
  - BLOOD PRESSURE INCREASED [None]
  - CELLULITIS [None]
  - ERYSIPELAS [None]
  - EYE ALLERGY [None]
  - HYPERSENSITIVITY [None]
  - PAIN [None]
  - PHARYNGEAL OEDEMA [None]
  - PHARYNGOLARYNGEAL PAIN [None]
  - URTICARIA [None]
